FAERS Safety Report 9363383 (Version 1)
Quarter: 2013Q2

REPORT INFORMATION
  Report Type: Spontaneous
  Country: US (occurrence: US)
  Receive Date: 20130624
  Receipt Date: 20130624
  Transmission Date: 20140414
  Serious: No
  Sender: FDA-Public Use
  Company Number: US-BAYER-2013-075329

PATIENT
  Sex: 0

DRUGS (1)
  1. STIVARGA [Suspect]

REACTIONS (1)
  - Pyrexia [None]
